FAERS Safety Report 6430809-4 (Version None)
Quarter: 2009Q4

REPORT INFORMATION
  Report Type: 
  Country: None (occurrence: None)
  Receive Date: 20091106
  Receipt Date: 20091105
  Transmission Date: 20100525
  Serious: Yes (Life-Threatening, Hospitalization, Other)
  Sender: FDA-Public Use
  Company Number: GR-BAYER-200832477GPV

PATIENT
  Age: 53 Year
  Sex: Female
  Weight: 48 kg

DRUGS (11)
  1. SORAFENIB [Suspect]
     Indication: NON-SMALL CELL LUNG CANCER
     Dosage: TOTAL DAILY DOSE: 800 MG
     Route: 048
     Dates: end: 20090125
  2. SORAFENIB [Suspect]
     Dosage: TOTAL DAILY DOSE: 800 MG
     Route: 048
     Dates: start: 20081125, end: 20081201
  3. SORAFENIB [Suspect]
     Dosage: TOTAL DAILY DOSE: 800 MG
     Route: 048
     Dates: end: 20090329
  4. CISPLATIN [Suspect]
     Indication: NON-SMALL CELL LUNG CANCER
     Route: 042
     Dates: start: 20081118, end: 20090317
  5. GEMCITABINE [Suspect]
     Indication: NON-SMALL CELL LUNG CANCER
     Dosage: ON DAY 1 AND 8 OF EVERY TREATMENT CYCLE
     Route: 042
     Dates: start: 20081118, end: 20090317
  6. THYROHORMONE [Concomitant]
     Indication: HYPERTHYROIDISM
     Route: 048
     Dates: start: 19730101
  7. SIMVASTATIN [Concomitant]
     Indication: HYPERLIPIDAEMIA
     Route: 048
     Dates: start: 20081001, end: 20081117
  8. ZOFRON [Concomitant]
     Indication: PROPHYLAXIS OF NAUSEA AND VOMITING
     Route: 048
     Dates: start: 20081118, end: 20081120
  9. EPREX [Concomitant]
     Indication: ANAEMIA
     Route: 058
     Dates: start: 20081125, end: 20081125
  10. ATORVASTATIN [Concomitant]
     Indication: HYPERLIPIDAEMIA
     Route: 065
     Dates: start: 20081211
  11. GRANOCYTE [Concomitant]
     Indication: NEUTROPENIA
     Route: 065
     Dates: start: 20090121, end: 20090124

REACTIONS (3)
  - PNEUMONIA [None]
  - PYREXIA [None]
  - THROMBOCYTOPENIA [None]
